FAERS Safety Report 10552903 (Version 4)
Quarter: 2015Q1

REPORT INFORMATION
  Report Type: Report from Study
  Country: FR (occurrence: FR)
  Receive Date: 20141029
  Receipt Date: 20150319
  Transmission Date: 20150720
  Serious: Yes (Hospitalization)
  Sender: FDA-Public Use
  Company Number: PHHY2014FR024741

PATIENT
  Age: 83 Year
  Sex: Male

DRUGS (8)
  1. AMN107 [Suspect]
     Active Substance: NILOTINIB
     Dosage: 300 MG, BID
     Route: 048
     Dates: start: 20130125
  2. OGAST [Concomitant]
     Active Substance: LANSOPRAZOLE
     Indication: PRODUCT USED FOR UNKNOWN INDICATION
     Route: 065
  3. ZYLORIC [Concomitant]
     Active Substance: ALLOPURINOL
     Indication: PRODUCT USED FOR UNKNOWN INDICATION
     Route: 065
  4. CORTANCYL [Concomitant]
     Active Substance: PREDNISONE
     Indication: RHEUMATIC DISORDER
     Dosage: 5 MG
     Route: 065
  5. MIANSERINE [Concomitant]
     Active Substance: MIANSERIN HYDROCHLORIDE
     Indication: PRODUCT USED FOR UNKNOWN INDICATION
     Dosage: 30 MG
     Route: 065
  6. AMN107 [Suspect]
     Active Substance: NILOTINIB
     Indication: CHRONIC MYELOID LEUKAEMIA
     Dosage: 300 MG, BID
     Route: 048
     Dates: start: 20120625, end: 20121228
  7. LASILIX [Concomitant]
     Active Substance: FUROSEMIDE
     Indication: PRODUCT USED FOR UNKNOWN INDICATION
     Route: 065
  8. ZANIDIP [Concomitant]
     Active Substance: LERCANIDIPINE HYDROCHLORIDE
     Indication: PRODUCT USED FOR UNKNOWN INDICATION
     Route: 065

REACTIONS (22)
  - Asthenia [Unknown]
  - Folate deficiency [Unknown]
  - Lung disorder [Recovered/Resolved]
  - Abasia [Unknown]
  - Inflammation [Unknown]
  - Skin lesion [Recovered/Resolved]
  - Mycobacterium tuberculosis complex test positive [Unknown]
  - General physical health deterioration [Recovered/Resolved]
  - Decreased appetite [Unknown]
  - Leukocytosis [Unknown]
  - Anaemia [Not Recovered/Not Resolved]
  - Respiratory distress [Recovered/Resolved]
  - Hypoxia [Unknown]
  - Helicobacter test positive [Unknown]
  - Tooth infection [Unknown]
  - Weight decreased [Recovered/Resolved]
  - Pneumococcal infection [Unknown]
  - Malnutrition [Recovered/Resolved]
  - C-reactive protein increased [Unknown]
  - Chronic kidney disease [Unknown]
  - Vitamin B12 deficiency [Unknown]
  - Oedema peripheral [Recovered/Resolved]

NARRATIVE: CASE EVENT DATE: 20120703
